FAERS Safety Report 5686936-2 (Version None)
Quarter: 2008Q1

REPORT INFORMATION
  Report Type: 
  Country: None (occurrence: None)
  Receive Date: 20080328
  Receipt Date: 20070507
  Transmission Date: 20080703
  Serious: No
  Sender: FDA-Public Use
  Company Number: US-BAYER-US-2007-016483

PATIENT
  Age: 47 Year
  Sex: Female
  Weight: 73 kg

DRUGS (3)
  1. MIRENA [Suspect]
     Route: 015
     Dates: start: 20070425, end: 20070425
  2. MOTRIN [Concomitant]
  3. OTHER COLD COMBINATION PREPARATIONS [Concomitant]
     Indication: SINUS DISORDER

REACTIONS (4)
  - ABDOMINAL PAIN LOWER [None]
  - BLOOD PRESSURE INCREASED [None]
  - COLD SWEAT [None]
  - SYNCOPE VASOVAGAL [None]
